FAERS Safety Report 7833947-4 (Version None)
Quarter: 2011Q4

REPORT INFORMATION
  Report Type: 
  Country: None (occurrence: None)
  Receive Date: 20111024
  Receipt Date: 20111013
  Transmission Date: 20120403
  Serious: Yes (Hospitalization, Other)
  Sender: FDA-Public Use
  Company Number: US-ASTRAZENECA-2011SE51136

PATIENT
  Age: 65 Year
  Sex: Female

DRUGS (1)
  1. NEXIUM [Suspect]
     Route: 048

REACTIONS (7)
  - FEMUR FRACTURE [None]
  - HYPERTENSION [None]
  - INFECTION [None]
  - OSTEOMYELITIS [None]
  - FALL [None]
  - DIABETES MELLITUS [None]
  - HYPERCOAGULATION [None]
